FAERS Safety Report 12340297 (Version 2)
Quarter: 2016Q2

REPORT INFORMATION
  Report Type: Report from Study
  Country: MX (occurrence: MX)
  Receive Date: 20160506
  Receipt Date: 20160513
  Transmission Date: 20160815
  Serious: Yes (Other)
  Sender: FDA-Public Use
  Company Number: PHHY2016MX057268

PATIENT
  Sex: Female

DRUGS (8)
  1. AROPAX [Suspect]
     Active Substance: PAROXETINE HYDROCHLORIDE
     Indication: DEPRESSION
  2. LEVETIRACETAM. [Concomitant]
     Active Substance: LEVETIRACETAM
     Indication: PRODUCT USED FOR UNKNOWN INDICATION
     Dosage: 1 DF, AT NIGHT
     Route: 048
  3. AROPAX [Suspect]
     Active Substance: PAROXETINE HYDROCHLORIDE
     Indication: EPILEPSY
     Dosage: 0.25 DF, QD (SINCE 3 OR 4 MONTHS AGO)
     Route: 065
  4. AROPAX [Suspect]
     Active Substance: PAROXETINE HYDROCHLORIDE
     Indication: STRESS
  5. AROPAX [Suspect]
     Active Substance: PAROXETINE HYDROCHLORIDE
     Indication: NERVOUS SYSTEM DISORDER
  6. RIVOTRIL [Concomitant]
     Active Substance: CLONAZEPAM
     Indication: STRESS
  7. RIVOTRIL [Concomitant]
     Active Substance: CLONAZEPAM
     Indication: INSOMNIA
     Dosage: 1 DF, AT NIGHT
     Route: 048
  8. TRILEPTAL [Suspect]
     Active Substance: OXCARBAZEPINE
     Indication: PRODUCT USED FOR UNKNOWN INDICATION
     Dosage: 2 DF, 1 IN THE MORNING AND 1 AT NIGHT
     Route: 048

REACTIONS (7)
  - Syncope [Unknown]
  - Amnesia [Unknown]
  - Product use issue [Not Recovered/Not Resolved]
  - Head injury [Not Recovered/Not Resolved]
  - Seizure [Not Recovered/Not Resolved]
  - Malaise [Not Recovered/Not Resolved]
  - Off label use [Not Recovered/Not Resolved]
